FAERS Safety Report 15279295 (Version 1)
Quarter: 2018Q3

REPORT INFORMATION
  Report Type: Spontaneous
  Country: US (occurrence: US)
  Receive Date: 20180815
  Receipt Date: 20180815
  Transmission Date: 20181010
  Serious: No
  Sender: FDA-Public Use
  Company Number: US-BAYER-2018-150254

PATIENT
  Age: 55 Year
  Sex: Male
  Weight: 85.99 kg

DRUGS (3)
  1. DULCOLAX (DOCUSATE SODIUM) [Concomitant]
     Active Substance: DOCUSATE SODIUM
  2. CLARITIN [Concomitant]
     Active Substance: LORATADINE
  3. MIRALAX [Suspect]
     Active Substance: POLYETHYLENE GLYCOL 3350
     Indication: COLONOSCOPY
     Dosage: POUR ENTIRE BOTTLE IN 64OZ OF GATORADE
     Route: 048

REACTIONS (3)
  - Off label use [Unknown]
  - Product use in unapproved indication [None]
  - Wrong technique in product usage process [Unknown]
